FAERS Safety Report 6201016-5 (Version None)
Quarter: 2009Q2

REPORT INFORMATION
  Report Type: 
  Country: None (occurrence: None)
  Receive Date: 20090526
  Receipt Date: 20090519
  Transmission Date: 20091009
  Serious: Yes (Hospitalization, Other)
  Sender: FDA-Public Use
  Company Number: BR-BAYER-200816049LA

PATIENT
  Age: 46 Year
  Sex: Female
  Weight: 65 kg

DRUGS (3)
  1. BETAFERON [Suspect]
     Indication: MULTIPLE SCLEROSIS
     Route: 058
     Dates: start: 20040101
  2. BETAFERON [Suspect]
     Route: 058
     Dates: start: 19910101, end: 20081001
  3. PROCTOBEL [Concomitant]
     Indication: DRUG USE FOR UNKNOWN INDICATION
     Route: 065

REACTIONS (12)
  - DIARRHOEA [None]
  - ENTEROCOLITIS INFECTIOUS [None]
  - HAEMATOCHEZIA [None]
  - HAEMORRHAGE [None]
  - HEADACHE [None]
  - INJECTION SITE RASH [None]
  - MUSCULOSKELETAL STIFFNESS [None]
  - NAUSEA [None]
  - PYREXIA [None]
  - URINARY TRACT INFECTION [None]
  - VENOUS THROMBOSIS LIMB [None]
  - VOMITING [None]
